FAERS Safety Report 4898702-6 (Version None)
Quarter: 2006Q1

REPORT INFORMATION
  Report Type: 
  Country: None (occurrence: None)
  Receive Date: 20060131
  Receipt Date: 20060117
  Transmission Date: 20060701
  Serious: Yes (Other)
  Sender: FDA-Public Use
  Company Number: 2006009365

PATIENT
  Age: 65 Year
  Sex: Male
  Weight: 92.9874 kg

DRUGS (6)
  1. LIPITOR [Suspect]
     Indication: BLOOD CHOLESTEROL INCREASED
     Dosage: 20 GM (20 MG, 1 IN 1 D), ORAL
     Route: 048
     Dates: start: 20050701
  2. MICRONASE [Suspect]
     Indication: DIABETES MELLITUS
     Dosage: 2.5 MG (2.5 MG, 1 IN 1 D), ORAL
     Route: 048
     Dates: start: 20050701
  3. ASPIRIN [Concomitant]
  4. COREG [Concomitant]
  5. LISINOPRIL [Concomitant]
  6. ALTACE [Concomitant]

REACTIONS (1)
  - IMPLANTABLE DEFIBRILLATOR INSERTION [None]
